FAERS Safety Report 6152841-0 (Version None)
Quarter: 2009Q2

REPORT INFORMATION
  Report Type: 
  Country: None (occurrence: None)
  Receive Date: 20090413
  Receipt Date: 20090331
  Transmission Date: 20091009
  Serious: Yes (Other)
  Sender: FDA-Public Use
  Company Number: US-PFIZER INC-2006033576

PATIENT
  Sex: Female
  Weight: 59 kg

DRUGS (9)
  1. PROVERA [Suspect]
     Indication: HORMONE REPLACEMENT THERAPY
     Dosage: UNK
     Route: 065
     Dates: start: 19850408, end: 19890719
  2. PREMARIN [Suspect]
     Indication: HORMONE REPLACEMENT THERAPY
     Dosage: UNK
     Route: 065
     Dates: start: 19850408, end: 19890719
  3. ESTRADERM [Suspect]
     Indication: HORMONE REPLACEMENT THERAPY
     Dosage: UNK
     Route: 062
     Dates: start: 19870707, end: 19880331
  4. ACETYLSALICYLIC ACID [Concomitant]
     Indication: ARTHRITIS
     Dosage: UNK
  5. ATENOLOL [Concomitant]
     Indication: HEART RATE IRREGULAR
     Dosage: UNK
     Dates: start: 20000101
  6. FENOPROFEN [Concomitant]
     Indication: ARTHRITIS
     Dosage: UNK
  7. LIPITOR [Concomitant]
     Indication: BLOOD CHOLESTEROL INCREASED
     Dosage: UNK
     Dates: start: 20000101
  8. TAMOXIFEN CITRATE [Concomitant]
     Indication: HORMONE REPLACEMENT THERAPY
     Dosage: UNK
     Dates: start: 19890720
  9. SYNTHROID [Concomitant]
     Indication: HYPERTHYROIDISM
     Dosage: UNK
     Dates: start: 19480101

REACTIONS (1)
  - BREAST CANCER [None]
